FAERS Safety Report 7965384-6 (Version None)
Quarter: 2011Q4

REPORT INFORMATION
  Report Type: 
  Country: None (occurrence: None)
  Receive Date: 20111208
  Receipt Date: 20111128
  Transmission Date: 20120403
  Serious: Yes (Other)
  Sender: FDA-Public Use
  Company Number: JP-BRISTOL-MYERS SQUIBB COMPANY-16273955

PATIENT
  Age: 28 Year
  Sex: Male

DRUGS (6)
  1. CYCLOPHOSPHAMIDE [Suspect]
     Indication: EPSTEIN-BARR VIRUS INFECTION
     Dosage: ON DAY1
  2. DOXORUBICIN HCL [Suspect]
     Indication: EPSTEIN-BARR VIRUS INFECTION
     Dosage: ON DAY1
  3. VINCRISTINE [Suspect]
     Indication: EPSTEIN-BARR VIRUS INFECTION
     Dosage: ON DAY1
  4. CYTARABINE [Suspect]
     Indication: EPSTEIN-BARR VIRUS INFECTION
     Dosage: 1 DF : 3G/M SUP2 HIGH DOSE,ON DAY 1 AND 2,RECEIVED 2 DOSES
  5. PREDNISOLONE [Suspect]
     Dosage: ON DAY 1-5
  6. CYCLOPHOSPHAMIDE [Suspect]
     Indication: EPSTEIN-BARR VIRUS INFECTION

REACTIONS (4)
  - NEUTROPENIA [None]
  - PYREXIA [None]
  - PERICARDIAL EFFUSION [None]
  - NEUROPATHY PERIPHERAL [None]
